FAERS Safety Report 5871583-X (Version None)
Quarter: 2008Q3

REPORT INFORMATION
  Report Type: 
  Country: None (occurrence: None)
  Receive Date: 20080905
  Receipt Date: 20080604
  Transmission Date: 20090109
  Serious: No
  Sender: FDA-Public Use
  Company Number: A0731165A

PATIENT
  Age: 83 Year
  Sex: Female

DRUGS (13)
  1. REQUIP [Suspect]
     Indication: DRUG USE FOR UNKNOWN INDICATION
     Dosage: 2MG AT NIGHT
     Route: 048
  2. LASIX [Concomitant]
  3. TOPROL-XL [Concomitant]
  4. LANOXIN [Concomitant]
  5. DIOVAN [Concomitant]
  6. POTASSIUM CHLORIDE [Concomitant]
  7. COUMADIN [Concomitant]
  8. ALDACTONE [Concomitant]
  9. TYLENOL (CAPLET) [Concomitant]
  10. GABAPENTIN [Concomitant]
  11. PROTONIX [Concomitant]
  12. LEXAPRO [Concomitant]
  13. CITRACAL WITH VITAMIN D [Concomitant]

REACTIONS (1)
  - DRUG SCREEN POSITIVE [None]
